FAERS Safety Report 7125249-9 (Version None)
Quarter: 2010Q4

REPORT INFORMATION
  Report Type: 
  Country: None (occurrence: None)
  Receive Date: 20101129
  Receipt Date: 20101115
  Transmission Date: 20110411
  Serious: Yes (Disabling, Other)
  Sender: FDA-Public Use
  Company Number: GB-ASTRAZENECA-2010SE54687

PATIENT
  Age: 48 Year
  Sex: Male

DRUGS (2)
  1. SEROQUEL [Suspect]
     Indication: PSYCHOTIC DISORDER
     Route: 048
  2. SEROQUEL [Suspect]
     Route: 048

REACTIONS (6)
  - BLINDNESS UNILATERAL [None]
  - CENTRAL NERVOUS SYSTEM LESION [None]
  - DEMYELINATION [None]
  - OPTIC NEURITIS [None]
  - PUPILLARY REFLEX IMPAIRED [None]
  - SCOTOMA [None]
